FAERS Safety Report 4340556-0 (Version None)
Quarter: 2004Q2

REPORT INFORMATION
  Report Type: 
  Country: None (occurrence: None)
  Receive Date: 20040416
  Receipt Date: 20040416
  Transmission Date: 20050107
  Serious: Yes (Other)
  Sender: FDA-Public Use
  Company Number: None

PATIENT
  Age: 61 Year
  Sex: Male
  Weight: 107 kg

DRUGS (2)
  1. OXALIPLATIN 280 MG 3/11/04 [Suspect]
     Indication: RECTAL CANCER
     Dosage: 280 MG IV
     Route: 042
     Dates: start: 20040219
  2. OXALIPLATIN 280 MG 3/11/04 [Suspect]
     Indication: RECTAL CANCER
     Dosage: 280 MG IV
     Route: 042
     Dates: start: 20040311

REACTIONS (3)
  - GRIMACING [None]
  - PAIN [None]
  - TENDERNESS [None]
